FAERS Safety Report 4331997-6 (Version None)
Quarter: 2004Q2

REPORT INFORMATION
  Report Type: 
  Country: None (occurrence: None)
  Receive Date: 20040405
  Receipt Date: 20031104
  Transmission Date: 20050107
  Serious: No
  Sender: FDA-Public Use
  Company Number: US-GLAXOSMITHKLINE-A0432869A

PATIENT
  Age: 63 Year
  Sex: Male

DRUGS (4)
  1. SEREVENT [Suspect]
     Indication: ASTHMA
     Dosage: 1PUFF TWICE PER DAY
     Route: 055
     Dates: start: 20030708
  2. AEROBID [Concomitant]
  3. FLOMAX [Concomitant]
  4. ENALAPRIL MALEATE [Concomitant]

REACTIONS (1)
  - COUGH [None]
